FAERS Safety Report 11256462 (Version 1)
Quarter: 2015Q3

REPORT INFORMATION
  Report Type: Spontaneous
  Country: US (occurrence: US)
  Receive Date: 20150709
  Receipt Date: 20150709
  Transmission Date: 20151125
  Serious: No
  Sender: FDA-Public Use
  Company Number: US-PURDUE-USA-2014-0116550

PATIENT
  Sex: Female

DRUGS (1)
  1. BUTRANS [Suspect]
     Active Substance: BUPRENORPHINE
     Indication: PAIN
     Dosage: UNK
     Route: 062
     Dates: start: 20140801, end: 20140807

REACTIONS (6)
  - Application site paraesthesia [Unknown]
  - Drug ineffective [Not Recovered/Not Resolved]
  - Application site irritation [Unknown]
  - Application site erythema [Unknown]
  - Application site erosion [Unknown]
  - Blister [Unknown]
